FAERS Safety Report 6580398-9 (Version None)
Quarter: 2010Q1

REPORT INFORMATION
  Report Type: 
  Country: None (occurrence: None)
  Receive Date: 20100212
  Receipt Date: 20100202
  Transmission Date: 20100710
  Serious: Yes (Hospitalization)
  Sender: FDA-Public Use
  Company Number: PHHY2009IT56912

PATIENT
  Sex: Female

DRUGS (8)
  1. COTAREG [Suspect]
     Indication: HYPERTENSION
     Dosage: 1 DF, QD
     Dates: start: 20091101, end: 20091210
  2. ESIDRIX [Suspect]
     Indication: HYPERTENSION
     Dosage: UNK
     Route: 048
     Dates: start: 20091101, end: 20091210
  3. CIPRALEX [Suspect]
     Indication: DEPRESSION
     Dosage: 0.5 DF, QD
     Dates: start: 20091204, end: 20091210
  4. TICLOPIDINE HCL [Concomitant]
     Indication: TRANSIENT ISCHAEMIC ATTACK
     Dosage: 2 DF, QD
     Dates: start: 20091119
  5. ATENOLOL [Concomitant]
     Indication: HYPERTENSION
     Dosage: 100 MG, UNK
     Dates: start: 20091118, end: 20091210
  6. OMEPRAZOL [Concomitant]
     Dosage: 20 MG, UNK
  7. POLASE [Concomitant]
     Indication: HYPOKALAEMIA
     Dosage: 1 SACHET DAILY
     Dates: start: 20091118, end: 20091210
  8. COGITON AR [Concomitant]
     Indication: DEPRESSION
     Dosage: UNK
     Dates: start: 20091204, end: 20091210

REACTIONS (7)
  - BALANCE DISORDER [None]
  - COGNITIVE DISORDER [None]
  - HYPOKALAEMIA [None]
  - HYPOKINESIA [None]
  - HYPONATRAEMIA [None]
  - SOMNOLENCE [None]
  - WHITE BLOOD CELL COUNT INCREASED [None]
